FAERS Safety Report 15017169 (Version 1)
Quarter: 2018Q2

REPORT INFORMATION
  Report Type: Spontaneous
  Country: US (occurrence: US)
  Receive Date: 20180615
  Receipt Date: 20180615
  Transmission Date: 20180711
  Serious: No
  Sender: FDA-Public Use
  Company Number: US-BAYER-2018-112648

PATIENT
  Sex: Female

DRUGS (2)
  1. CLARITIN [Suspect]
     Active Substance: LORATADINE
     Dosage: UNK
     Route: 065
  2. CLARITIN [Suspect]
     Active Substance: LORATADINE
     Dosage: 2-3 TIMES PER WEEK
     Route: 065

REACTIONS (2)
  - Anxiety [Unknown]
  - Depression [Unknown]
